FAERS Safety Report 14848143 (Version 3)
Quarter: 2018Q4

REPORT INFORMATION
  Report Type: Spontaneous
  Country: US (occurrence: US)
  Receive Date: 20180504
  Receipt Date: 20181120
  Transmission Date: 20190204
  Serious: No
  Sender: FDA-Public Use
  Company Number: US-PFIZER INC-2017528000

PATIENT
  Age: 61 Year
  Sex: Female
  Weight: 85.71 kg

DRUGS (23)
  1. DOCETAXEL. [Suspect]
     Active Substance: DOCETAXEL
     Dosage: 154 MG, CYCLIC EVERY 3 WEEKS (SIX CYCLES)
     Dates: start: 20120515
  2. TAXOTERE [Suspect]
     Active Substance: DOCETAXEL
     Dosage: 152 MG, CYCLIC EVERY 3 WEEKS (6 CYCLES)
     Dates: start: 20120612, end: 20120724
  3. PARAPLATIN [Concomitant]
     Active Substance: CARBOPLATIN
     Dosage: 600 MG, UNK
     Dates: start: 20120515
  4. PARAPLATIN [Concomitant]
     Active Substance: CARBOPLATIN
     Dosage: 660 MG, UNK
     Dates: start: 20120612, end: 20120703
  5. OXYCODONE [Concomitant]
     Active Substance: OXYCODONE
     Dosage: UNK
     Dates: start: 1998
  6. DOCETAXEL. [Suspect]
     Active Substance: DOCETAXEL
     Dosage: 156 MG, CYCLIC EVERY 3 WEEKS (SIX CYCLES)
     Dates: start: 20120424
  7. DULOXETINE. [Concomitant]
     Active Substance: DULOXETINE
     Dosage: UNK
     Dates: start: 1998
  8. VERAPAMIL [Concomitant]
     Active Substance: VERAPAMIL HYDROCHLORIDE
     Dosage: 240 MG, UNK
     Dates: start: 1998
  9. CLONIDINE. [Concomitant]
     Active Substance: CLONIDINE
     Dosage: 0.1 MG, UNK
     Dates: start: 1998
  10. PARAPLATIN [Concomitant]
     Active Substance: CARBOPLATIN
     Dosage: 610 MG, UNK
     Dates: start: 20120424
  11. PARAPLATIN [Concomitant]
     Active Substance: CARBOPLATIN
     Indication: CHEMOTHERAPY
     Dosage: 670 MG, UNK
     Dates: start: 20120403
  12. GABAPENTIN. [Concomitant]
     Active Substance: GABAPENTIN
     Dosage: UNK
     Dates: start: 1998
  13. PERCOCET [Concomitant]
     Active Substance: ACETAMINOPHEN\OXYCODONE HYDROCHLORIDE
     Dosage: UNK
     Dates: start: 1998
  14. TAXOTERE [Suspect]
     Active Substance: DOCETAXEL
     Dosage: 156 MG, CYCLIC EVERY 3 WEEKS (6 CYCLES)
     Dates: start: 20120424
  15. TAXOTERE [Suspect]
     Active Substance: DOCETAXEL
     Dosage: UNK, CYCLIC EVERY 3 WEEKS (6 CYCLES)
     Dates: end: 20120824
  16. PARAPLATIN [Concomitant]
     Active Substance: CARBOPLATIN
     Dosage: 660 MG, UNK
     Dates: start: 20120703
  17. DOCETAXEL. [Suspect]
     Active Substance: DOCETAXEL
     Dosage: 152 MG, CYCLIC EVERY 3 WEEKS (SIX CYCLES)
     Dates: start: 20120612, end: 20120724
  18. DOCETAXEL. [Suspect]
     Active Substance: DOCETAXEL
     Dosage: UNK, CYCLIC EVERY 3 WEEKS (SIX CYCLES)
     Dates: end: 20120824
  19. DOCETAXEL. [Suspect]
     Active Substance: DOCETAXEL
     Indication: INVASIVE DUCTAL BREAST CARCINOMA
     Dosage: 158 MG, CYCLIC EVERY 3 WEEKS (SIX CYCLES)
     Dates: start: 20120403
  20. TAXOTERE [Suspect]
     Active Substance: DOCETAXEL
     Dosage: 154 MG, CYCLIC EVERY 3 WEEKS (6 CYCLES)
     Dates: start: 20120515
  21. PARAPLATIN [Concomitant]
     Active Substance: CARBOPLATIN
     Dosage: 630 MG, UNK
     Dates: start: 20120724
  22. LETROZOLE. [Concomitant]
     Active Substance: LETROZOLE
     Indication: HORMONE THERAPY
     Dosage: 215 MG, UNK
     Dates: start: 201208
  23. TAXOTERE [Suspect]
     Active Substance: DOCETAXEL
     Indication: INVASIVE DUCTAL BREAST CARCINOMA
     Dosage: 158 MG, CYCLIC EVERY 3 WEEKS (6 CYCLES)
     Dates: start: 20120403

REACTIONS (7)
  - Hair texture abnormal [Not Recovered/Not Resolved]
  - Madarosis [Not Recovered/Not Resolved]
  - Alopecia [Not Recovered/Not Resolved]
  - Hair disorder [Not Recovered/Not Resolved]
  - Depressed mood [Unknown]
  - Hair colour changes [Not Recovered/Not Resolved]
  - Depression [Unknown]

NARRATIVE: CASE EVENT DATE: 20130124
